FAERS Safety Report 8431557-1 (Version None)
Quarter: 2012Q2

REPORT INFORMATION
  Report Type: 
  Country: None (occurrence: None)
  Receive Date: 20120607
  Receipt Date: 20120607
  Transmission Date: 20120825
  Serious: Yes (Other)
  Sender: FDA-Public Use
  Company Number: None

PATIENT
  Age: 57 Year
  Sex: Female
  Weight: 86.637 kg

DRUGS (2)
  1. PLAQUENIL [Suspect]
  2. MOBIC [Suspect]
     Indication: ARTHRITIS
     Dosage: PRESCRIBED BY DR BRIMINGHAM

REACTIONS (3)
  - EXFOLIATIVE RASH [None]
  - RASH PRURITIC [None]
  - RASH GENERALISED [None]
